FAERS Safety Report 4493853-2 (Version None)
Quarter: 2004Q4

REPORT INFORMATION
  Report Type: 
  Country: None (occurrence: None)
  Receive Date: 20041104
  Receipt Date: 20041022
  Transmission Date: 20050328
  Serious: Yes (Hospitalization)
  Sender: FDA-Public Use
  Company Number: 2004UW21998

PATIENT
  Age: 57 Year
  Sex: Female
  Weight: 49.89 kg

DRUGS (3)
  1. CRESTOR [Suspect]
     Indication: HYPERCHOLESTEROLAEMIA
     Dates: start: 20031101
  2. INDERAL [Concomitant]
  3. LORAZEPAM [Concomitant]

REACTIONS (16)
  - ASTHENIA [None]
  - BACK PAIN [None]
  - BLOOD PRESSURE INADEQUATELY CONTROLLED [None]
  - DRUG INEFFECTIVE [None]
  - FEELING ABNORMAL [None]
  - GALLBLADDER DISORDER [None]
  - HAEMATURIA [None]
  - HEART RATE INCREASED [None]
  - HEPATITIS A [None]
  - LYMPHADENITIS [None]
  - MYALGIA [None]
  - PANCREATITIS CHRONIC [None]
  - PROTEINURIA [None]
  - PYREXIA [None]
  - URINE ABNORMALITY [None]
  - WEIGHT DECREASED [None]
